FAERS Safety Report 18148643 (Version 2)
Quarter: 2020Q3

REPORT INFORMATION
  Report Type: Spontaneous
  Country: JP (occurrence: JP)
  Receive Date: 20200813
  Receipt Date: 20200901
  Transmission Date: 20201103
  Serious: Yes (Other)
  Sender: FDA-Public Use
  Company Number: JP-PURDUE-USA-2020-0161950

PATIENT
  Age: 39 Year
  Sex: Male

DRUGS (27)
  1. OXYCONTIN [Suspect]
     Active Substance: OXYCODONE HYDROCHLORIDE
     Indication: PAIN
     Dosage: 80 MG, DAILY
     Route: 065
  2. OXIFAST [Interacting]
     Active Substance: OXYCODONE
     Dosage: 42 MG, DAILY
     Route: 042
  3. ACETAMINOPHEN. [Concomitant]
     Active Substance: ACETAMINOPHEN
     Indication: PAIN
  4. FLURBIPROFEN AXETIL [Concomitant]
     Active Substance: FLURBIPROFEN AXETIL
     Indication: PAIN
  5. MESNA. [Concomitant]
     Active Substance: MESNA
     Indication: CUTANEOUS T-CELL LYMPHOMA
  6. OXIFAST [Interacting]
     Active Substance: OXYCODONE
     Dosage: 60 MG, DAILY
     Route: 042
  7. OXIFAST [Interacting]
     Active Substance: OXYCODONE
     Dosage: UNK
     Route: 042
  8. OXIFAST [Interacting]
     Active Substance: OXYCODONE
     Dosage: 5 MG, DAILY
     Route: 042
  9. DEXAMETHASONE. [Concomitant]
     Active Substance: DEXAMETHASONE
     Indication: CUTANEOUS T-CELL LYMPHOMA
  10. OXIFAST [Interacting]
     Active Substance: OXYCODONE
     Indication: CANCER PAIN
     Dosage: 18 MG, DAILY
     Route: 042
  11. OXIFAST [Interacting]
     Active Substance: OXYCODONE
     Dosage: UNK
     Route: 042
  12. LOXOPROFEN [Concomitant]
     Active Substance: LOXOPROFEN
     Indication: CANCER PAIN
     Dosage: 180 MG, DAILY
  13. LOXOPROFEN [Concomitant]
     Active Substance: LOXOPROFEN
     Indication: PAIN
     Dosage: 180 MG, DAILY
  14. ETOPOSIDE. [Concomitant]
     Active Substance: ETOPOSIDE
     Indication: CUTANEOUS T-CELL LYMPHOMA
  15. FLUCONAZOLE. [Interacting]
     Active Substance: FLUCONAZOLE
     Indication: PRODUCT USED FOR UNKNOWN INDICATION
     Dosage: 100 MG, DAILY
     Route: 065
  16. OXIFAST [Interacting]
     Active Substance: OXYCODONE
     Dosage: 30 MG, DAILY
     Route: 042
  17. ACETAMINOPHEN. [Concomitant]
     Active Substance: ACETAMINOPHEN
     Indication: CANCER PAIN
  18. OXYCODONE HYDROCHLORIDE. [Interacting]
     Active Substance: OXYCODONE HYDROCHLORIDE
     Indication: CANCER PAIN
     Dosage: 80 MG, DAILY
     Route: 065
  19. OXIFAST [Interacting]
     Active Substance: OXYCODONE
     Dosage: 5 MG, DAILY
     Route: 042
  20. CARBOPLATIN. [Concomitant]
     Active Substance: CARBOPLATIN
     Indication: CUTANEOUS T-CELL LYMPHOMA
  21. FEBUXOSTAT. [Concomitant]
     Active Substance: FEBUXOSTAT
     Indication: HYPERURICAEMIA
  22. OXIFAST [Interacting]
     Active Substance: OXYCODONE
     Dosage: 60 MG, DAILY
     Route: 042
  23. OXIFAST [Interacting]
     Active Substance: OXYCODONE
     Dosage: 18 MG, DAILY
     Route: 042
  24. OXIFAST [Interacting]
     Active Substance: OXYCODONE
     Dosage: 30 MG, DAILY
     Route: 042
  25. OXIFAST [Interacting]
     Active Substance: OXYCODONE
     Dosage: 42 MG, DAILY
     Route: 042
  26. IFOSFAMIDE. [Suspect]
     Active Substance: IFOSFAMIDE
     Indication: CUTANEOUS T-CELL LYMPHOMA
     Dosage: UNK
     Route: 065
  27. FLURBIPROFEN AXETIL [Concomitant]
     Active Substance: FLURBIPROFEN AXETIL
     Indication: CANCER PAIN

REACTIONS (3)
  - Respiratory depression [Recovered/Resolved]
  - Tumour lysis syndrome [Recovering/Resolving]
  - Drug interaction [Recovered/Resolved]
